FAERS Safety Report 13097477 (Version 1)
Quarter: 2017Q1

REPORT INFORMATION
  Report Type: Spontaneous
  Country: US (occurrence: US)
  Receive Date: 20170109
  Receipt Date: 20170109
  Transmission Date: 20170428
  Serious: No
  Sender: FDA-Public Use
  Company Number: US-JNJFOC-20161218027

PATIENT
  Age: 14 Month
  Sex: Male
  Weight: 11.79 kg

DRUGS (2)
  1. MOTRIN INFANTS [Suspect]
     Active Substance: IBUPROFEN
     Indication: ACCIDENTAL EXPOSURE TO PRODUCT
     Dosage: A FULL DROPPER
     Route: 048
     Dates: start: 20161219, end: 20161219
  2. MOTRIN INFANTS [Suspect]
     Active Substance: IBUPROFEN
     Route: 048

REACTIONS (1)
  - Incorrect dose administered [Unknown]

NARRATIVE: CASE EVENT DATE: 20161219
